FAERS Safety Report 10712891 (Version 1)
Quarter: 2015Q1

REPORT INFORMATION
  Report Type: Spontaneous
  Country: US (occurrence: None)
  Receive Date: 20150114
  Receipt Date: 20150114
  Transmission Date: 20150721
  Serious: No
  Sender: FDA-Public Use
  Company Number: None

PATIENT
  Age: 53 Year
  Sex: Male
  Weight: 106 kg

DRUGS (2)
  1. LITHIUM CR 450 MG ROXANE LABORATORIES INC [Suspect]
     Active Substance: LITHIUM CARBONATE
     Indication: AFFECTIVE DISORDER
     Dosage: 2 TABLETS
     Route: 048
  2. LITHIUM SR 300 MG [Suspect]
     Active Substance: LITHIUM CARBONATE
     Indication: AFFECTIVE DISORDER
     Route: 048
     Dates: start: 20141019, end: 20141021

REACTIONS (2)
  - Polyuria [None]
  - Polydipsia [None]

NARRATIVE: CASE EVENT DATE: 20141021
